FAERS Safety Report 24147831 (Version 1)
Quarter: 2024Q3

REPORT INFORMATION
  Report Type: Spontaneous
  Country: US (occurrence: None)
  Receive Date: 20240727
  Receipt Date: 20240727
  Transmission Date: 20241016
  Serious: Yes (unspecified)
  Sender: Public
  Company Number: None

PATIENT
  Age: 10 Year
  Sex: Male
  Weight: 58.5 kg

DRUGS (1)
  1. MONTELUKAST [Suspect]
     Active Substance: MONTELUKAST SODIUM
     Indication: Multiple allergies
     Dosage: OTHER QUANTITY : 1 CAPSULE(S);?
     Route: 048
     Dates: start: 20210601, end: 20240601

REACTIONS (6)
  - Crying [None]
  - Mood altered [None]
  - Behaviour disorder [None]
  - Depressed mood [None]
  - Anxiety [None]
  - Agitation [None]

NARRATIVE: CASE EVENT DATE: 20240601
